FAERS Safety Report 21027730 (Version 2)
Quarter: 2022Q3

REPORT INFORMATION
  Report Type: Spontaneous
  Country: CA (occurrence: CA)
  Receive Date: 20220630
  Receipt Date: 20220701
  Transmission Date: 20221026
  Serious: Yes (Life-Threatening, Hospitalization, Other)
  Sender: FDA-Public Use
  Company Number: CA-MLMSERVICE-20220616-3620808-1

PATIENT
  Age: 39 Year
  Sex: Male

DRUGS (3)
  1. EPIRUBICIN [Suspect]
     Active Substance: EPIRUBICIN
     Indication: Adenocarcinoma gastric
     Dosage: 50 MG/M2, CYCLIC (2 CYCLE)
     Route: 042
  2. OXALIPLATIN [Concomitant]
     Active Substance: OXALIPLATIN
     Indication: Adenocarcinoma gastric
     Dosage: 130 MG, CYCLIC (FOR 1 DAY)
     Route: 042
  3. CAPECITABINE [Concomitant]
     Active Substance: CAPECITABINE
     Indication: Adenocarcinoma gastric
     Dosage: 52500 MG/M2, CYCLIC (625 MG/M^2 TWICE A DAY FOR 21 DAYS)
     Route: 048

REACTIONS (4)
  - Diarrhoea [Unknown]
  - Drug intolerance [Unknown]
  - Hepatic steatosis [Unknown]
  - Blood bilirubin increased [Unknown]
